FAERS Safety Report 25382637 (Version 3)
Quarter: 2025Q4

REPORT INFORMATION
  Report Type: Report from Study
  Country: EU (occurrence: EU)
  Receive Date: 20250601
  Receipt Date: 20251007
  Transmission Date: 20260117
  Serious: Yes (Hospitalization, Other)
  Sender: ABBVIE
  Company Number: EU-ABBVIE-6306320

PATIENT
  Sex: Male

DRUGS (2)
  1. FOSCARBIDOPA\FOSLEVODOPA [Suspect]
     Active Substance: FOSCARBIDOPA\FOSLEVODOPA
     Indication: Parkinson^s disease
     Dosage: DOSAGE: CRL:0.35 ML/H, CR: 0.49 ML/H, CRH: 0.49 ML/H, ED: 0.15 ML.
     Route: 058
     Dates: start: 20241022
  2. FOSCARBIDOPA\FOSLEVODOPA [Suspect]
     Active Substance: FOSCARBIDOPA\FOSLEVODOPA
     Dosage: CRN 0.28 ML/H, CR 0.36 ML/H, CRH 0.36 ML/H.
     Route: 058

REACTIONS (5)
  - General physical health deterioration [Not Recovered/Not Resolved]
  - Medical device implantation [Unknown]
  - Hypokinesia [Not Recovered/Not Resolved]
  - On and off phenomenon [Not Recovered/Not Resolved]
  - Malaise [Not Recovered/Not Resolved]
